FAERS Safety Report 4837737-6 (Version None)
Quarter: 2005Q4

REPORT INFORMATION
  Report Type: 
  Country: None (occurrence: None)
  Receive Date: 20051128
  Receipt Date: 20051004
  Transmission Date: 20060501
  Serious: Yes (Other)
  Sender: FDA-Public Use
  Company Number: US-MERCK-0510USA02420

PATIENT
  Age: 53 Year
  Sex: Female
  Weight: 77 kg

DRUGS (5)
  1. VIOXX [Suspect]
     Indication: MUSCULOSKELETAL DISORDER
     Route: 048
     Dates: start: 20000101, end: 20040101
  2. VIOXX [Suspect]
     Route: 048
     Dates: start: 20000101, end: 20040101
  3. SINEMET [Concomitant]
     Route: 065
  4. SINEMET [Concomitant]
     Route: 065
  5. SELEGILINE [Concomitant]
     Route: 065

REACTIONS (7)
  - CEREBROVASCULAR ACCIDENT [None]
  - DYSARTHRIA [None]
  - EMOTIONAL DISTRESS [None]
  - MUSCULOSKELETAL STIFFNESS [None]
  - OVERDOSE [None]
  - PARKINSON'S DISEASE [None]
  - VISION BLURRED [None]
